FAERS Safety Report 15620682 (Version 2)
Quarter: 2019Q4

REPORT INFORMATION
  Report Type: Report from Study
  Country: JP (occurrence: JP)
  Receive Date: 20181115
  Receipt Date: 20191202
  Transmission Date: 20200122
  Serious: Yes (Other)
  Sender: FDA-Public Use
  Company Number: JP-TEVA-2018-JP-006061J

PATIENT
  Age: 26 Year
  Sex: Male

DRUGS (27)
  1. QUETIAPINE TABLET 25MG ^TEVA^ [Suspect]
     Active Substance: QUETIAPINE
     Indication: PRODUCT USED FOR UNKNOWN INDICATION
     Route: 048
  2. DOMPERIDONE TABLET 10MG ^TYK^ [Suspect]
     Active Substance: DOMPERIDONE
     Indication: PRODUCT USED FOR UNKNOWN INDICATION
     Dosage: 10 MILLIGRAM DAILY;
     Route: 048
     Dates: start: 20180215, end: 20180323
  3. LEVOCETIRIZINE DIHYDROCHLORIDE. [Suspect]
     Active Substance: LEVOCETIRIZINE DIHYDROCHLORIDE
     Indication: PRURITUS
  4. DELTYBA [Suspect]
     Active Substance: DELAMANID
     Indication: PULMONARY TUBERCULOSIS
     Dosage: 200 MILLIGRAM DAILY;
     Route: 048
     Dates: start: 20171206, end: 20180323
  5. CYCLOSERINE. [Suspect]
     Active Substance: CYCLOSERINE
     Indication: TUBERCULOSIS
     Dosage: 500 MILLIGRAM DAILY;
     Route: 048
     Dates: start: 20171114, end: 20171218
  6. SORENTMIN TABLET 0.25MG (BROTIZOLAM) [Suspect]
     Active Substance: BROTIZOLAM
     Indication: PRODUCT USED FOR UNKNOWN INDICATION
     Dosage: .25 MILLIGRAM DAILY;
     Route: 048
     Dates: start: 20171210, end: 20180118
  7. QUETIAPINE TABLET 25MG ^TEVA^ [Suspect]
     Active Substance: QUETIAPINE
     Indication: INSOMNIA
     Dosage: 25 MILLIGRAM DAILY;
     Route: 048
     Dates: start: 20180115, end: 20180323
  8. HEPARINOID [Suspect]
     Active Substance: CHONDROITIN SULFATE (BOVINE)
     Indication: PRODUCT USED FOR UNKNOWN INDICATION
     Dosage: .3 PERCENT DAILY;
     Route: 065
     Dates: start: 20180206, end: 20180323
  9. KANAMYCIN SULFATE [Suspect]
     Active Substance: KANAMYCIN SULFATE
     Indication: TUBERCULOSIS
     Dosage: 750 MILLIGRAM DAILY;
     Route: 030
     Dates: start: 20171110, end: 20180323
  10. ETHIONAMIDE [Suspect]
     Active Substance: ETHIONAMIDE
     Indication: TUBERCULOSIS
     Dosage: 200 MILLIGRAM DAILY;
     Route: 048
     Dates: start: 20171114, end: 20171218
  11. LEVOCETIRIZINE DIHYDROCHLORIDE. [Suspect]
     Active Substance: LEVOCETIRIZINE DIHYDROCHLORIDE
     Indication: PRODUCT USED FOR UNKNOWN INDICATION
     Dosage: 5 MILLIGRAM DAILY;
     Route: 048
     Dates: start: 20171214, end: 20180323
  12. SHOSEIRYUTO [Suspect]
     Active Substance: EPHEDRA SINICA STEM\HERBALS
     Indication: PRODUCT USED FOR UNKNOWN INDICATION
     Dosage: 9 GRAM DAILY;
     Route: 048
     Dates: start: 20180101, end: 20180118
  13. MUCOSTA [Suspect]
     Active Substance: REBAMIPIDE
     Indication: PRODUCT USED FOR UNKNOWN INDICATION
     Dosage: 100 MILLIGRAM DAILY;
     Route: 048
     Dates: start: 20171110, end: 20180323
  14. HUSCODE [Suspect]
     Active Substance: CHLORPHENIRAMINE MALEATE\DIHYDROCODEINE PHOSPHATE\METHYLEPHEDRINE HYDROCHLORIDE, DL-
     Indication: PRODUCT USED FOR UNKNOWN INDICATION
     Dosage: 3 MILLIGRAM DAILY;
     Route: 048
     Dates: start: 20171124, end: 20180123
  15. RAMELTEON [Suspect]
     Active Substance: RAMELTEON
     Indication: PRODUCT USED FOR UNKNOWN INDICATION
     Dosage: 8 MILLIGRAM DAILY;
     Route: 048
     Dates: start: 20180111, end: 20180118
  16. ETHAMBUTOL DIHYDROCHLORIDE [Suspect]
     Active Substance: ETHAMBUTOL HYDROCHLORIDE
     Indication: TUBERCULOSIS
     Dosage: 750 MILLIGRAM DAILY;
     Route: 048
     Dates: start: 20171110, end: 20171207
  17. CARBAZOCHROME SODIUM SULFONATE [Suspect]
     Active Substance: CARBAZOCHROME SODIUM SULFONATE
     Indication: PRODUCT USED FOR UNKNOWN INDICATION
     Dosage: 90 MILLIGRAM DAILY;
     Route: 048
     Dates: start: 20171115, end: 20180124
  18. LANSOPRAZOLE. [Suspect]
     Active Substance: LANSOPRAZOLE
     Indication: PRODUCT USED FOR UNKNOWN INDICATION
     Dosage: 15 MILLIGRAM DAILY;
     Route: 048
     Dates: start: 20171214, end: 20180323
  19. LINEZOLID. [Suspect]
     Active Substance: LINEZOLID
     Indication: TUBERCULOSIS
     Dosage: 600 MILLIGRAM DAILY;
     Route: 048
     Dates: start: 20171204, end: 20180306
  20. TRANEXAMIC ACID. [Suspect]
     Active Substance: TRANEXAMIC ACID
     Indication: PRODUCT USED FOR UNKNOWN INDICATION
     Dosage: 750 MILLIGRAM DAILY;
     Route: 048
     Dates: start: 20171115, end: 20180124
  21. ETHIONAMIDE [Suspect]
     Active Substance: ETHIONAMIDE
     Dosage: 500 MILLIGRAM DAILY;
     Route: 048
     Dates: start: 20171227, end: 20180323
  22. DIPHENHYDRAMINE. [Suspect]
     Active Substance: DIPHENHYDRAMINE
     Indication: PRURITUS
     Dosage: 1 PERCENT DAILY;
     Route: 065
     Dates: start: 20171218, end: 20180323
  23. METOCLOPRAMIDE. [Suspect]
     Active Substance: METOCLOPRAMIDE
     Indication: NAUSEA
  24. LOXOMARIN TABLET 60MG [Suspect]
     Active Substance: LOXOPROFEN
     Indication: PRODUCT USED FOR UNKNOWN INDICATION
     Dosage: 60 MILLIGRAM DAILY;
     Route: 048
     Dates: start: 20171129, end: 20180208
  25. QUETIAPINE TABLET 25MG ^TEVA^ [Suspect]
     Active Substance: QUETIAPINE
     Indication: RESTLESSNESS
  26. METOCLOPRAMIDE. [Suspect]
     Active Substance: METOCLOPRAMIDE
     Indication: VOMITING
     Route: 048
     Dates: start: 20171219, end: 20180213
  27. LEVOFLOXACIN HEMIHYDRATE [Suspect]
     Active Substance: LEVOFLOXACIN
     Indication: TUBERCULOSIS
     Dosage: 500 MILLIGRAM DAILY;
     Route: 048
     Dates: start: 20171110, end: 20180323

REACTIONS (10)
  - Anaemia [Unknown]
  - Pancytopenia [Recovering/Resolving]
  - Pruritus [Not Recovered/Not Resolved]
  - Insomnia [Not Recovered/Not Resolved]
  - Vomiting [Recovering/Resolving]
  - Restlessness [Recovering/Resolving]
  - Gastrointestinal disorder [Unknown]
  - Restlessness [Unknown]
  - Nausea [Recovering/Resolving]
  - Platelet count decreased [Unknown]

NARRATIVE: CASE EVENT DATE: 20171207
